FAERS Safety Report 10851014 (Version 1)
Quarter: 2015Q1

REPORT INFORMATION
  Report Type: Spontaneous
  Country: US (occurrence: US)
  Receive Date: 20150222
  Receipt Date: 20150222
  Transmission Date: 20150721
  Serious: No
  Sender: FDA-Public Use
  Company Number: US-ALLERGAN-1402427US

PATIENT
  Age: 34 Year
  Sex: Female

DRUGS (14)
  1. KETOPROFEN. [Concomitant]
     Active Substance: KETOPROFEN
     Indication: MIGRAINE
     Dosage: UNK UNK, PRN
     Route: 048
  2. BOTOX [Suspect]
     Active Substance: ONABOTULINUMTOXINA
     Dosage: 200 UNITS, SINGLE
     Route: 030
  3. VERAPAMIL [Concomitant]
     Active Substance: VERAPAMIL HYDROCHLORIDE
     Dosage: 160 MG, QPM
     Route: 048
     Dates: start: 201310
  4. DILAUDID [Concomitant]
     Active Substance: HYDROMORPHONE HYDROCHLORIDE
     Indication: MIGRAINE
     Dosage: 8 MG, PRN
     Route: 048
  5. PROMETHAZINE [Concomitant]
     Active Substance: PROMETHAZINE\PROMETHAZINE HYDROCHLORIDE
     Indication: NAUSEA
     Dosage: 2.5 MG, PRN
     Route: 048
     Dates: start: 201310
  6. BOTOX [Suspect]
     Active Substance: ONABOTULINUMTOXINA
     Indication: MIGRAINE
     Dosage: 200 UNITS, SINGLE
     Route: 030
     Dates: start: 201312, end: 201312
  7. TOPAMAX [Concomitant]
     Active Substance: TOPIRAMATE
     Dosage: 100 MG, QPM
     Route: 048
     Dates: start: 2010
  8. SUMATRIPTAN. [Concomitant]
     Active Substance: SUMATRIPTAN
     Indication: MIGRAINE
     Dosage: 100 MG, PRN
     Route: 048
     Dates: start: 201310
  9. NARATRIPTAN [Concomitant]
     Active Substance: NARATRIPTAN HYDROCHLORIDE
     Indication: MIGRAINE
     Dosage: 2.5 MG, PRN
     Route: 048
     Dates: start: 201310
  10. VERAPAMIL [Concomitant]
     Active Substance: VERAPAMIL HYDROCHLORIDE
     Indication: MIGRAINE
     Dosage: 80 MG, QAM
     Route: 048
     Dates: start: 201310
  11. TRAZODONE [Concomitant]
     Active Substance: TRAZODONE HYDROCHLORIDE
     Indication: DEPRESSION
     Dosage: 100 MG, QD
     Route: 048
     Dates: start: 201306
  12. TOPAMAX [Concomitant]
     Active Substance: TOPIRAMATE
     Indication: MIGRAINE
     Dosage: 50 MG, QAM
     Route: 048
     Dates: start: 2010
  13. TRAZODONE [Concomitant]
     Active Substance: TRAZODONE HYDROCHLORIDE
     Indication: MIGRAINE
  14. NORTRIPTYLINE [Concomitant]
     Active Substance: NORTRIPTYLINE
     Indication: MIGRAINE
     Dosage: 50 MG, QHS
     Route: 048

REACTIONS (8)
  - Off label use [Unknown]
  - Malaise [Recovered/Resolved]
  - Vitamin D deficiency [Unknown]
  - Facial paresis [Unknown]
  - Drug ineffective [Unknown]
  - Therapeutic response decreased [Unknown]
  - Headache [Recovered/Resolved]
  - Alopecia [Not Recovered/Not Resolved]

NARRATIVE: CASE EVENT DATE: 201311
